FAERS Safety Report 6345689-5 (Version None)
Quarter: 2009Q3

REPORT INFORMATION
  Report Type: 
  Country: None (occurrence: None)
  Receive Date: 20090909
  Receipt Date: 20090828
  Transmission Date: 20100115
  Serious: Yes (Death)
  Sender: FDA-Public Use
  Company Number: JP-PFIZER INC-2009255997

PATIENT
  Age: 94 Year

DRUGS (3)
  1. VFEND [Suspect]
     Indication: BRONCHOPULMONARY ASPERGILLOSIS
     Dosage: UNK
     Route: 048
     Dates: start: 20090722, end: 20090820
  2. ZYVOX [Concomitant]
     Indication: PNEUMONIA STAPHYLOCOCCAL
     Dosage: UNK
     Route: 042
     Dates: start: 20090810, end: 20090823
  3. FRANDOL [Concomitant]
     Dosage: UNK
     Route: 062
     Dates: start: 20090609, end: 20090827

REACTIONS (2)
  - BRADYCARDIA [None]
  - PNEUMONIA BACTERIAL [None]
